FAERS Safety Report 15191933 (Version 2)
Quarter: 2018Q3

REPORT INFORMATION
  Report Type: Spontaneous
  Country: US (occurrence: US)
  Receive Date: 20180724
  Receipt Date: 20180824
  Transmission Date: 20181010
  Serious: No
  Sender: FDA-Public Use
  Company Number: US-SA-2018SA199952

PATIENT
  Age: 6 Year
  Sex: Male
  Weight: 15.42 kg

DRUGS (2)
  1. PRALUENT [Suspect]
     Active Substance: ALIROCUMAB
     Dosage: UNK, 1X
  2. PRALUENT [Suspect]
     Active Substance: ALIROCUMAB
     Dosage: UNK UNK, 1X

REACTIONS (3)
  - Injection site pain [Unknown]
  - Accidental exposure to product by child [Unknown]
  - Injection site erythema [Unknown]
